FAERS Safety Report 14248595 (Version 1)
Quarter: 2017Q4

REPORT INFORMATION
  Report Type: Spontaneous
  Country: GB (occurrence: GB)
  Receive Date: 20171203
  Receipt Date: 20171203
  Transmission Date: 20180321
  Serious: Yes (Disabling)
  Sender: FDA-Public Use
  Company Number: None

PATIENT
  Age: 42 Year
  Sex: Female

DRUGS (2)
  1. INHALERS [Concomitant]
     Active Substance: UNSPECIFIED INGREDIENT
  2. FUCIBET CREAM [Suspect]
     Active Substance: BETAMETHASONE\FUSIDIC ACID
     Route: 061

REACTIONS (1)
  - Steroid withdrawal syndrome [None]

NARRATIVE: CASE EVENT DATE: 20141121
